FAERS Safety Report 16703725 (Version 1)
Quarter: 2019Q3

REPORT INFORMATION
  Report Type: Spontaneous
  Country: US (occurrence: US)
  Receive Date: 20190814
  Receipt Date: 20190814
  Transmission Date: 20191004
  Serious: Yes (Hospitalization, Other)
  Sender: FDA-Public Use
  Company Number: US-PFIZER INC-2019340776

PATIENT
  Age: 20 Year
  Sex: Male

DRUGS (9)
  1. DOXORUBICIN HCL [Suspect]
     Active Substance: DOXORUBICIN HYDROCHLORIDE
     Dosage: 35 MG, UNK (ADMINISTERED IV PUSH)
     Route: 042
     Dates: start: 1983
  2. BLEOMYCIN SULFATE [Suspect]
     Active Substance: BLEOMYCIN SULFATE
     Indication: HODGKIN^S DISEASE STAGE III
     Dosage: UNK, CYCLIC
     Dates: start: 1983
  3. PREDNISONE. [Suspect]
     Active Substance: PREDNISONE
     Indication: HODGKIN^S DISEASE STAGE III
     Dosage: UNK, CYCLIC
     Dates: start: 1983
  4. VINCRISTINE SULFATE. [Suspect]
     Active Substance: VINCRISTINE SULFATE
     Indication: HODGKIN^S DISEASE STAGE III
     Dosage: UNK, CYCLIC
     Dates: start: 1983
  5. IMIDAZOLE CARBOXAMIDE [Suspect]
     Active Substance: DACARBAZINE
     Indication: HODGKIN^S DISEASE STAGE III
     Dosage: UNK, CYCLIC
     Dates: start: 1983
  6. DOXORUBICIN HCL [Suspect]
     Active Substance: DOXORUBICIN HYDROCHLORIDE
     Indication: HODGKIN^S DISEASE STAGE III
     Dosage: UNK, CYCLIC
     Dates: start: 1983
  7. NITROGEN MUSTARD [Suspect]
     Active Substance: MECHLORETHAMINE OXIDE HYDROCHLORIDE
     Indication: HODGKIN^S DISEASE STAGE III
     Dosage: UNK, CYCLIC
     Dates: start: 1983
  8. VINBLASTINE [Suspect]
     Active Substance: VINBLASTINE
     Indication: HODGKIN^S DISEASE STAGE III
     Dosage: UNK, CYCLIC
     Dates: start: 1983
  9. PROCARBAZINE [Suspect]
     Active Substance: PROCARBAZINE
     Indication: HODGKIN^S DISEASE STAGE III
     Dosage: UNK, CYCLIC
     Dates: start: 1983

REACTIONS (5)
  - Chemical phlebitis [Recovering/Resolving]
  - Drug intolerance [Recovering/Resolving]
  - Nausea [Recovering/Resolving]
  - Bone marrow failure [Recovering/Resolving]
  - Vomiting [Recovering/Resolving]

NARRATIVE: CASE EVENT DATE: 1983
